FAERS Safety Report 6925844-3 (Version None)
Quarter: 2010Q3

REPORT INFORMATION
  Report Type: 
  Country: None (occurrence: None)
  Receive Date: 20100816
  Receipt Date: 20100809
  Transmission Date: 20110219
  Serious: Yes (Hospitalization)
  Sender: FDA-Public Use
  Company Number: CHPA2010IT11621

PATIENT
  Sex: Male

DRUGS (1)
  1. NEO-CIBALGINA (NCH) [Suspect]
     Dosage: 1 DF, QD
     Route: 048
     Dates: start: 20100625

REACTIONS (2)
  - BRONCHOSPASM [None]
  - DYSPNOEA [None]
